FAERS Safety Report 7688825-0 (Version None)
Quarter: 2011Q3

REPORT INFORMATION
  Report Type: 
  Country: None (occurrence: None)
  Receive Date: 20110817
  Receipt Date: 20110805
  Transmission Date: 20111222
  Serious: Yes (Other)
  Sender: FDA-Public Use
  Company Number: PHEH2009US13008

PATIENT
  Sex: Female

DRUGS (10)
  1. ZOMETA [Suspect]
     Indication: OSTEOPOROSIS
  2. AVASTIN [Concomitant]
  3. OXYCONTIN [Concomitant]
  4. VICODIN [Concomitant]
  5. ZOFRAN [Concomitant]
  6. AREDIA [Suspect]
     Indication: BONE LOSS
     Dosage: 90 MG, UNK
     Route: 042
  7. CYTOXAN [Concomitant]
  8. ZOMETA [Suspect]
     Indication: BONE LOSS
     Dosage: 4 MG, UNK
     Route: 042
  9. AREDIA [Suspect]
     Indication: OSTEOPOROSIS
  10. TAMOXIFEN CITRATE [Concomitant]

REACTIONS (15)
  - BREAST MASS [None]
  - OSTEONECROSIS OF JAW [None]
  - PAIN [None]
  - BREAST CANCER FEMALE [None]
  - BONE LESION [None]
  - BONE PAIN [None]
  - METASTASES TO BONE [None]
  - BACK PAIN [None]
  - INJURY [None]
  - NECK PAIN [None]
  - ARTHRALGIA [None]
  - GINGIVAL PAIN [None]
  - METASTASES TO LYMPH NODES [None]
  - MUSCULOSKELETAL CHEST PAIN [None]
  - OROPHARYNGEAL PAIN [None]
